FAERS Safety Report 14128159 (Version 1)
Quarter: 2017Q4

REPORT INFORMATION
  Report Type: Spontaneous
  Country: US (occurrence: US)
  Receive Date: 20171026
  Receipt Date: 20171026
  Transmission Date: 20180321
  Serious: No
  Sender: FDA-Public Use
  Company Number: US-FRESENIUS MEDICAL CARE RENAL THERAPIES GROUP-FMC-1710-001206

PATIENT
  Age: 79 Year
  Sex: Male

DRUGS (9)
  1. DELFLEX [Suspect]
     Active Substance: CALCIUM CHLORIDE\DEXTROSE\MAGNESIUM CHLORIDE\SODIUM CHLORIDE\SODIUM LACTATE
     Indication: END STAGE RENAL DISEASE
     Dosage: 1200ML/ EACH CYCLE WITH A TOTAL DAILY VOLUME OF 8000ML
     Route: 033
     Dates: start: 20170802
  2. TAMSULOSIN [Concomitant]
     Active Substance: TAMSULOSIN
  3. IMIPRAMINE [Concomitant]
     Active Substance: IMIPRAMINE
  4. GENTAMICIN. [Concomitant]
     Active Substance: GENTAMICIN
  5. PAROXETINE. [Concomitant]
     Active Substance: PAROXETINE
  6. PHOSLO [Concomitant]
     Active Substance: CALCIUM ACETATE
  7. FOLIC ACID. [Concomitant]
     Active Substance: FOLIC ACID
  8. OMEPRAZOLE. [Concomitant]
     Active Substance: OMEPRAZOLE
  9. RENAPLEX [Concomitant]

REACTIONS (1)
  - Abdominal distension [Recovered/Resolved]

NARRATIVE: CASE EVENT DATE: 20171007
